FAERS Safety Report 22120745 (Version 4)
Quarter: 2023Q4

REPORT INFORMATION
  Report Type: Report from Study
  Country: AU (occurrence: None)
  Receive Date: 20230321
  Receipt Date: 20231031
  Transmission Date: 20240110
  Serious: Yes (Hospitalization, Other)
  Sender: FDA-Public Use
  Company Number: AU-ROCHE-3302984

PATIENT
  Age: 62 Year
  Sex: Female

DRUGS (8)
  1. COBIMETINIB [Suspect]
     Active Substance: COBIMETINIB
     Indication: Ovarian cancer
     Dosage: C2D16, MOST RECENT DOSE 01/MAR/2023 EVERY DAY FOR 21 DAYS
     Route: 065
     Dates: start: 20230118
  2. BEVACIZUMAB [Suspect]
     Active Substance: BEVACIZUMAB
     Indication: Ovarian cancer
     Dosage: C2D1, MOST RECENT DOSE 15/FEB/2023
     Route: 042
     Dates: start: 20230118
  3. ATEZOLIZUMAB [Suspect]
     Active Substance: ATEZOLIZUMAB
     Indication: Ovarian cancer
     Dosage: MOST RECENT DOSE 01/MAR/2023
     Route: 041
     Dates: start: 20230215
  4. ACETAMINOPHEN [Concomitant]
     Active Substance: ACETAMINOPHEN
     Indication: Pain
     Route: 050
     Dates: start: 20210901
  5. ATORVASTATIN [Concomitant]
     Active Substance: ATORVASTATIN
     Indication: Hyperlipidaemia
     Dates: start: 20220330
  6. ASPIRIN [Concomitant]
     Active Substance: ASPIRIN
     Indication: Pain
     Route: 050
     Dates: start: 20221001
  7. CANDESARTAN [Concomitant]
     Active Substance: CANDESARTAN
     Indication: Hypertension
     Route: 050
     Dates: start: 20230202
  8. METFORMIN [Concomitant]
     Active Substance: METFORMIN HYDROCHLORIDE
     Indication: Glucose tolerance impaired
     Dates: start: 20220320

REACTIONS (2)
  - Encephalopathy [Recovered/Resolved]
  - Hypertension [Recovered/Resolved]

NARRATIVE: CASE EVENT DATE: 20230302
